FAERS Safety Report 16116539 (Version 1)
Quarter: 2019Q1

REPORT INFORMATION
  Report Type: Spontaneous
  Country: JP (occurrence: JP)
  Receive Date: 20190326
  Receipt Date: 20190326
  Transmission Date: 20190418
  Serious: Yes (Hospitalization, Other)
  Sender: FDA-Public Use
  Company Number: JP-ROCHE-2286196

PATIENT
  Age: 70 Year
  Sex: Male
  Weight: 54 kg

DRUGS (21)
  1. HIRUDOID (JAPAN) [Concomitant]
     Route: 003
  2. LONSURF [Suspect]
     Active Substance: TIPIRACIL HYDROCHLORIDE\TRIFLURIDINE
     Indication: COLON CANCER
     Route: 048
     Dates: start: 20181115, end: 20181210
  3. LATANOPROST. [Concomitant]
     Active Substance: LATANOPROST
     Route: 047
  4. ISOTONIC SODIUM CHLORIDE SOLUTION KIT H [Concomitant]
     Route: 065
  5. 5-FU [Suspect]
     Active Substance: FLUOROURACIL
     Dosage: LAST KNOWN DOSE: 03/OCT/2018
     Route: 041
     Dates: start: 20140825
  6. BIO-THREE [Concomitant]
     Active Substance: HERBALS
     Route: 048
  7. LOSARTAN POTASSIUM. [Concomitant]
     Active Substance: LOSARTAN POTASSIUM
     Route: 048
  8. REBAMIPIDE [Concomitant]
     Active Substance: REBAMIPIDE
     Route: 048
  9. LOCOID [Concomitant]
     Active Substance: HYDROCORTISONE BUTYRATE
     Route: 003
  10. OXALIPLATIN. [Concomitant]
     Active Substance: OXALIPLATIN
     Route: 065
     Dates: start: 20110118, end: 20110830
  11. NEXIUM [Concomitant]
     Active Substance: ESOMEPRAZOLE MAGNESIUM
     Route: 048
  12. AZELNIDIPINE [Concomitant]
     Active Substance: AZELNIDIPINE
     Route: 048
  13. ANFLAVATE [Concomitant]
     Active Substance: BETAMETHASONE BUTYRATE PROPIONATE
     Route: 003
  14. DEXART [Concomitant]
     Active Substance: DEXAMETHASONE SODIUM PHOSPHATE
     Route: 065
  15. CALCIUM LEVOFOLINATE [Concomitant]
     Active Substance: LEVOLEUCOVORIN CALCIUM
     Route: 065
     Dates: start: 20140825, end: 20170622
  16. ALOXI [Concomitant]
     Active Substance: PALONOSETRON HYDROCHLORIDE
     Route: 065
  17. OXALIPLATIN. [Concomitant]
     Active Substance: OXALIPLATIN
     Indication: COLON CANCER
     Route: 041
     Dates: start: 20170803, end: 20180920
  18. AVASTIN [Suspect]
     Active Substance: BEVACIZUMAB
     Indication: COLON CANCER
     Route: 041
     Dates: start: 20170803, end: 20181210
  19. 5-FU [Suspect]
     Active Substance: FLUOROURACIL
     Indication: COLON CANCER
     Dosage: LAST KNOWN DOSE: 03/OCT/2018
     Route: 040
     Dates: start: 20140825
  20. ELIQUIS [Concomitant]
     Active Substance: APIXABAN
     Route: 048
  21. CALCIUM LEVOFOLINATE [Concomitant]
     Active Substance: LEVOLEUCOVORIN CALCIUM
     Indication: COLON CANCER
     Route: 041
     Dates: start: 20170803, end: 20180920

REACTIONS (3)
  - Interstitial lung disease [Unknown]
  - Interstitial lung disease [Recovering/Resolving]
  - Lymphangiosis carcinomatosa [Unknown]

NARRATIVE: CASE EVENT DATE: 2018
